FAERS Safety Report 19141709 (Version 1)
Quarter: 2021Q2

REPORT INFORMATION
  Report Type: Spontaneous
  Country: AU (occurrence: AU)
  Receive Date: 20210415
  Receipt Date: 20210415
  Transmission Date: 20210717
  Serious: Yes (Other)
  Sender: FDA-Public Use
  Company Number: AU-TEVA-2021-AU-1900072

PATIENT
  Age: 48 Year
  Sex: Female

DRUGS (2)
  1. VALACICLOVIR [Suspect]
     Active Substance: VALACYCLOVIR HYDROCHLORIDE
     Indication: ANTIVIRAL PROPHYLAXIS
     Route: 065
  2. METHYL?AMINOLEVULINATE [Suspect]
     Active Substance: METHYL AMINOLEVULINATE
     Indication: BOWEN^S DISEASE
     Dosage: RECEIVED 2 CYCLES
     Route: 065

REACTIONS (2)
  - Drug ineffective [Unknown]
  - Herpes zoster [Recovered/Resolved]
